FAERS Safety Report 7556386-2 (Version None)
Quarter: 2011Q2

REPORT INFORMATION
  Report Type: 
  Country: None (occurrence: None)
  Receive Date: 20110620
  Receipt Date: 20110606
  Transmission Date: 20111010
  Serious: Yes (Death)
  Sender: FDA-Public Use
  Company Number: GB-AMGEN-GBRCT2010002098

PATIENT
  Sex: Male
  Weight: 64 kg

DRUGS (5)
  1. ETANERCEPT [Suspect]
     Indication: RHEUMATOID ARTHRITIS
     Dosage: 25 MG, 2 TIMES/WK
     Dates: start: 20040914
  2. BENDROFLUMETHIAZIDE [Concomitant]
     Dosage: UNKNOWN
  3. TERAZOSIN HCL [Concomitant]
     Dosage: UNKNOWN
  4. CO-DYDRAMOL [Concomitant]
     Dosage: UNKNOWN
  5. PREDNISOLONE [Concomitant]
     Dosage: UNKNOWN

REACTIONS (2)
  - MYELODYSPLASTIC SYNDROME [None]
  - PERIPHERAL VASCULAR DISORDER [None]
